FAERS Safety Report 21271883 (Version 11)
Quarter: 2024Q2

REPORT INFORMATION
  Report Type: Report from Study
  Country: US (occurrence: US)
  Receive Date: 20220830
  Receipt Date: 20240402
  Transmission Date: 20240717
  Serious: Yes (Other)
  Sender: FDA-Public Use
  Company Number: US-ABBVIE-22K-163-4413852-00

PATIENT
  Age: 65 Year
  Sex: Female

DRUGS (7)
  1. HUMIRA [Suspect]
     Active Substance: ADALIMUMAB
     Indication: Rheumatoid arthritis
     Dosage: CITRATE FREE?FORM STRENGTH WAS 40 MILLIGRAM
     Route: 058
  2. HUMIRA [Suspect]
     Active Substance: ADALIMUMAB
     Dosage: FORM STRENGTH WAS 40 MILLIGRAM ?CITRATE FREE
     Route: 058
     Dates: start: 20200805, end: 20240127
  3. HUMIRA [Suspect]
     Active Substance: ADALIMUMAB
     Dosage: FORM STRENGTH WAS 40 MILLIGRAM ?CITRATE FREE
     Route: 058
  4. HUMIRA [Suspect]
     Active Substance: ADALIMUMAB
     Dosage: CITRATE FREE ?FORM STRENGTH WAS 40 MILLIGRAM
     Route: 058
  5. COVID-19 vaccine [Concomitant]
     Indication: COVID-19 immunisation
     Dosage: FREQUENCY ONE IN ONCE
     Route: 030
  6. ASPIRIN [Concomitant]
     Active Substance: ASPIRIN
     Indication: Product used for unknown indication
  7. DILTIAZEM [Concomitant]
     Active Substance: DILTIAZEM
     Indication: Product used for unknown indication

REACTIONS (21)
  - Ocular rosacea [Unknown]
  - Acne [Unknown]
  - Dry mouth [Unknown]
  - Seasonal allergy [Unknown]
  - Device physical property issue [Unknown]
  - Narrow anterior chamber angle [Unknown]
  - Eye operation [Unknown]
  - Asthma [Unknown]
  - Intraocular pressure increased [Unknown]
  - General symptom [Unknown]
  - Supraventricular tachycardia [Unknown]
  - Pain in extremity [Unknown]
  - Visual impairment [Unknown]
  - Lung disorder [Unknown]
  - Hypoaesthesia [Unknown]
  - Pulmonary mass [Unknown]
  - Arthralgia [Unknown]
  - Neck pain [Unknown]
  - Pneumonia [Unknown]
  - Electrocardiogram abnormal [Unknown]
  - Dry eye [Unknown]

NARRATIVE: CASE EVENT DATE: 20221201
